FAERS Safety Report 4539791-8 (Version None)
Quarter: 2004Q4

REPORT INFORMATION
  Report Type: 
  Country: None (occurrence: None)
  Receive Date: 20041223
  Receipt Date: 20041209
  Transmission Date: 20050328
  Serious: Yes (Life-Threatening)
  Sender: FDA-Public Use
  Company Number: GBR-2004-0001404

PATIENT
  Age: 71 Year
  Sex: Male

DRUGS (5)
  1. OXYCONTIN [Suspect]
     Indication: POSTOPERATIVE ANALGESIA
     Dosage: 10 MG, ORAL
     Route: 048
     Dates: start: 20041116, end: 20041116
  2. ATORVASTATIN(ATORVASTATIN) [Concomitant]
  3. AMLODIPINE [Concomitant]
  4. ACETYLSALICYLIC ACID SRT [Concomitant]
  5. CO-DYDRAMOL [Concomitant]

REACTIONS (7)
  - BLOOD PRESSURE DIASTOLIC DECREASED [None]
  - CHEST PAIN [None]
  - HEART RATE INCREASED [None]
  - HYPERHIDROSIS [None]
  - PYREXIA [None]
  - URTICARIA GENERALISED [None]
  - WHEEZING [None]
